FAERS Safety Report 24239568 (Version 1)
Quarter: 2024Q3

REPORT INFORMATION
  Report Type: Spontaneous
  Country: US (occurrence: US)
  Receive Date: 20240822
  Receipt Date: 20240822
  Transmission Date: 20241016
  Serious: No
  Sender: AVADEL CNS PHARMA
  Company Number: US-AVADEL CNS PHARMACEUTICALS, LLC-2024AVA00927

PATIENT
  Sex: Female

DRUGS (10)
  1. LUMRYZ [Suspect]
     Active Substance: SODIUM OXYBATE
     Indication: Narcolepsy
     Dosage: 4.5 G, ONCE NIGHTLY
     Route: 048
     Dates: start: 202402
  2. LUMRYZ [Suspect]
     Active Substance: SODIUM OXYBATE
     Indication: Cataplexy
     Dosage: 4.5 G, ONCE NIGHTLY
     Route: 048
     Dates: start: 20240615
  3. LUMRYZ [Suspect]
     Active Substance: SODIUM OXYBATE
     Indication: Sleep disorder
  4. LUMRYZ [Suspect]
     Active Substance: SODIUM OXYBATE
     Indication: Narcolepsy
     Dosage: 6 G, ONCE NIGHTLY
     Route: 048
     Dates: start: 202406, end: 20240614
  5. LUMRYZ [Suspect]
     Active Substance: SODIUM OXYBATE
     Indication: Cataplexy
  6. LUMRYZ [Suspect]
     Active Substance: SODIUM OXYBATE
     Indication: Sleep disorder
  7. MODAFINIL [Concomitant]
     Active Substance: MODAFINIL
     Dosage: 50 MG, (SHE SPLITS IT IN HALF AND ONLY TAKE 50MG DAILY IN THE MORNING) BECAUSE TAKING ^FULL PILL GIV
  8. BUSPIRONE [Concomitant]
     Active Substance: BUSPIRONE HYDROCHLORIDE
     Dosage: 10 MG, ONCE DAILY
  9. BUSPIRONE [Concomitant]
     Active Substance: BUSPIRONE HYDROCHLORIDE
     Dosage: 20 MG, ONCE DAILY
  10. FLUOXETINE [Concomitant]
     Active Substance: FLUOXETINE HYDROCHLORIDE
     Dosage: 30 MG, ONCE DAILY

REACTIONS (16)
  - Insomnia [Not Recovered/Not Resolved]
  - Stress [Recovering/Resolving]
  - Intrusive thoughts [Unknown]
  - Micturition urgency [Unknown]
  - Feeling abnormal [Unknown]
  - Anxiety [Recovering/Resolving]
  - Dizziness [Not Recovered/Not Resolved]
  - Paraesthesia [Unknown]
  - Panic disorder [Recovering/Resolving]
  - Depressed mood [Unknown]
  - Decreased appetite [Unknown]
  - Nausea [Unknown]
  - Disturbance in attention [Unknown]
  - Tremor [Unknown]
  - Therapeutic product effect delayed [Not Recovered/Not Resolved]
  - Emotional disorder [Unknown]

NARRATIVE: CASE EVENT DATE: 20240101
